FAERS Safety Report 20070918 (Version 1)
Quarter: 2021Q4

REPORT INFORMATION
  Report Type: Spontaneous
  Country: CH (occurrence: CH)
  Receive Date: 20211115
  Receipt Date: 20211115
  Transmission Date: 20220303
  Serious: Yes (Hospitalization, Other)
  Sender: FDA-Public Use
  Company Number: None

PATIENT
  Age: 66 Year
  Sex: Male

DRUGS (46)
  1. REMERON [Suspect]
     Active Substance: MIRTAZAPINE
     Dosage: 15 MILLIGRAM
     Route: 048
     Dates: start: 20211009, end: 20211010
  2. REMERON [Suspect]
     Active Substance: MIRTAZAPINE
     Dosage: 30 MILLIGRAM
     Route: 048
     Dates: start: 20211012, end: 20211012
  3. REMERON [Suspect]
     Active Substance: MIRTAZAPINE
     Dosage: 15 MILLIGRAM, USUAL
     Route: 048
     Dates: end: 202110
  4. ENALAPRIL MALEATE [Suspect]
     Active Substance: ENALAPRIL MALEATE
     Dosage: 10 MILLIGRAM
     Route: 048
     Dates: end: 202110
  5. AMOXICILLIN\CLAVULANATE POTASSIUM [Suspect]
     Active Substance: AMOXICILLIN\CLAVULANATE POTASSIUM
     Dosage: TOTAL  22000 MG
     Route: 042
     Dates: start: 20211011, end: 20211013
  6. PIPERACILLIN SODIUM\TAZOBACTAM SODIUM [Suspect]
     Active Substance: PIPERACILLIN SODIUM\TAZOBACTAM SODIUM
     Dosage: 4.5 GRAM
     Route: 042
     Dates: start: 20211010, end: 20211011
  7. PROPOFOL [Suspect]
     Active Substance: PROPOFOL
     Dosage: 2% (TOTAL  4355 MG)
     Dates: start: 20211013, end: 20211014
  8. PROPOFOL [Suspect]
     Active Substance: PROPOFOL
     Dosage: 10 MILLIGRAM
     Dates: start: 20211011, end: 20211013
  9. PROPOFOL [Suspect]
     Active Substance: PROPOFOL
     Dosage: 1% AMPOULE (TOTAL 140 MG)
     Dates: start: 20211011, end: 20211013
  10. ERYTHROMYCIN [Suspect]
     Active Substance: ERYTHROMYCIN
     Dosage: IN TOTAL
     Route: 042
     Dates: start: 20211004, end: 20211004
  11. PERFALGAN [Suspect]
     Active Substance: ACETAMINOPHEN
     Dosage: 1000 MILLIGRAM
     Route: 042
     Dates: start: 20211011, end: 20211011
  12. CRESTOR [Suspect]
     Active Substance: ROSUVASTATIN CALCIUM
     Dosage: 20 MILLIGRAM
     Route: 048
     Dates: end: 20211011
  13. DAFALGAN [Suspect]
     Active Substance: ACETAMINOPHEN
     Dosage: 1 GRAM
     Route: 048
     Dates: end: 202110
  14. SINTROM [Concomitant]
     Active Substance: ACENOCOUMAROL
     Dosage: UNK
     Dates: end: 202110
  15. ALDACTONE [Concomitant]
     Active Substance: SPIRONOLACTONE
     Dosage: UNK
     Dates: end: 20211013
  16. TORSEMIDE [Concomitant]
     Active Substance: TORSEMIDE
     Dosage: UNK
     Dates: end: 20211010
  17. METOPROLOL SUCCINATE [Concomitant]
     Active Substance: METOPROLOL SUCCINATE
     Dosage: UNK
     Dates: end: 202110
  18. DUTASTERIDE\TAMSULOSIN [Concomitant]
     Active Substance: DUTASTERIDE\TAMSULOSIN
     Dosage: UNK
     Dates: end: 202110
  19. IMOVANE [Concomitant]
     Active Substance: ZOPICLONE
     Dosage: UNK
     Dates: end: 20211010
  20. TRANSIPEG [MACROGOL 3350;POTASSIUM CHLORIDE;SODIUM BICARBONATE;SODIUM [Concomitant]
     Dosage: UNK
     Dates: end: 202110
  21. SODIUM PICOSULFATE [Concomitant]
     Active Substance: SODIUM PICOSULFATE
     Dosage: UNK
     Dates: end: 20211011
  22. SODIUM PICOSULFATE [Concomitant]
     Active Substance: SODIUM PICOSULFATE
     Dosage: PRN (AS NECESSARY)
     Dates: start: 20211011
  23. GLYCOPYRRONIUM\INDACATEROL [Concomitant]
     Active Substance: GLYCOPYRRONIUM\INDACATEROL
     Dosage: UNK
     Dates: end: 20211011
  24. CALCIUM\CHOLECALCIFEROL [Concomitant]
     Active Substance: CALCIUM\CHOLECALCIFEROL
     Dosage: UNK
     Dates: end: 202110
  25. CHOLECALCIFEROL [Concomitant]
     Active Substance: CHOLECALCIFEROL
     Dosage: UNK
     Dates: end: 202110
  26. LORAZEPAM [Concomitant]
     Active Substance: LORAZEPAM
     Dosage: UNK
     Dates: end: 202110
  27. ALBUMIN HUMAN [Concomitant]
     Active Substance: ALBUMIN HUMAN
     Dosage: UNK
     Dates: start: 20211014, end: 20211018
  28. CALCIUM CHLORIDE [Concomitant]
     Active Substance: CALCIUM CHLORIDE
     Dosage: UNK
     Dates: start: 20211011, end: 20211015
  29. ROCURONIUM BROMIDE [Concomitant]
     Active Substance: ROCURONIUM BROMIDE
     Dosage: UNK
     Dates: start: 20211013, end: 20211014
  30. FENTANYL [Concomitant]
     Active Substance: FENTANYL
     Dosage: UNK
     Dates: start: 20211013, end: 20211018
  31. LASIX [Concomitant]
     Active Substance: FUROSEMIDE
     Dosage: UNK
     Dates: start: 20211011, end: 20211018
  32. HEPARIN [Concomitant]
     Active Substance: HEPARIN SODIUM
     Dosage: UNK
     Dates: start: 20211009
  33. ALBUTEROL SULFATE\IPRATROPIUM BROMIDE [Concomitant]
     Active Substance: ALBUTEROL SULFATE\IPRATROPIUM BROMIDE
     Dosage: UNK
     Dates: start: 20211009, end: 20211018
  34. KETALAR [Concomitant]
     Active Substance: KETAMINE HYDROCHLORIDE
     Dosage: UNK
     Dates: start: 20211011, end: 20211014
  35. MAGNESIUM SULFATE [Concomitant]
     Active Substance: MAGNESIUM SULFATE
     Dosage: UNK
     Dates: start: 20211011, end: 20211012
  36. MOVICOL [Concomitant]
     Active Substance: POLYETHYLENE GLYCOL 3350\POTASSIUM CHLORIDE\SODIUM BICARBONATE\SODIUM CHLORIDE
     Dosage: UNK, PRN (AS NECESSARY)
     Dates: start: 20211011
  37. NEXIUM [Concomitant]
     Active Substance: ESOMEPRAZOLE MAGNESIUM
     Dosage: UNK
     Dates: start: 20211004, end: 20211005
  38. NEXIUM [Concomitant]
     Active Substance: ESOMEPRAZOLE MAGNESIUM
     Dosage: UNK
     Dates: start: 20211009
  39. NOREPINEPHRINE [Concomitant]
     Active Substance: NOREPINEPHRINE
     Dosage: UNK
     Dates: start: 20211011
  40. POTASSIUM [Concomitant]
     Active Substance: POTASSIUM
     Dosage: UNK
     Dates: start: 20211013, end: 20211018
  41. GENTAMICIN SULFATE [Concomitant]
     Active Substance: GENTAMICIN SULFATE
     Dosage: UNK
     Dates: start: 20211012, end: 20211013
  42. VANCOMYCIN [Concomitant]
     Active Substance: VANCOMYCIN
     Dosage: UNK
     Dates: start: 20211011, end: 20211013
  43. MIDAZOLAM HYDROCHLORIDE [Concomitant]
     Active Substance: MIDAZOLAM HYDROCHLORIDE
     Dosage: UNK
     Dates: start: 20211004, end: 20211004
  44. KONAKION [Concomitant]
     Active Substance: PHYTONADIONE
     Dosage: UNK
     Dates: start: 20211004, end: 20211004
  45. QUETIAPINE [Concomitant]
     Active Substance: QUETIAPINE
     Dosage: UNK
     Dates: start: 20211004, end: 20211004
  46. FIG FRUIT OIL\SORBITOL [Concomitant]
     Active Substance: FIG FRUIT OIL\SORBITOL
     Dosage: UNK
     Dates: start: 20211009, end: 20211011

REACTIONS (1)
  - Jaundice cholestatic [Not Recovered/Not Resolved]

NARRATIVE: CASE EVENT DATE: 20211014
